FAERS Safety Report 5887897-3 (Version None)
Quarter: 2008Q3

REPORT INFORMATION
  Report Type: 
  Country: None (occurrence: None)
  Receive Date: 20080918
  Receipt Date: 20080916
  Transmission Date: 20090109
  Serious: Yes (Hospitalization)
  Sender: FDA-Public Use
  Company Number: A0743785A

PATIENT
  Age: 43 Year
  Sex: Male

DRUGS (11)
  1. ALBUTEROL [Suspect]
     Indication: DRUG USE FOR UNKNOWN INDICATION
     Route: 065
  2. INTERFERON [Suspect]
     Indication: HEPATITIS C
     Dosage: .5MG WEEKLY
     Route: 058
     Dates: start: 20071216, end: 20080627
  3. RIBAVIRIN [Suspect]
     Indication: HEPATITIS C
     Dosage: 200MG TWICE PER DAY
     Route: 048
     Dates: start: 20071216, end: 20080627
  4. ANTIBIOTICS [Suspect]
     Route: 042
  5. LEXAPRO [Concomitant]
     Route: 048
  6. AMBIEN [Concomitant]
     Route: 048
  7. REGLAN [Concomitant]
     Dosage: 10MG AS REQUIRED
     Route: 048
  8. IBUPROFEN [Concomitant]
     Dosage: 800MG AS REQUIRED
     Route: 048
  9. TRUVADA [Concomitant]
  10. REYATAZ [Concomitant]
     Route: 048
  11. NORVIR [Concomitant]
     Route: 048

REACTIONS (18)
  - ASPARTATE AMINOTRANSFERASE INCREASED [None]
  - BURNING SENSATION [None]
  - CONVULSION [None]
  - DEHYDRATION [None]
  - DEPRESSION [None]
  - DIARRHOEA [None]
  - FALL [None]
  - FATIGUE [None]
  - GALLBLADDER DISORDER [None]
  - HEPATOMEGALY [None]
  - INFUSION SITE PAIN [None]
  - MALAISE [None]
  - PAIN [None]
  - PNEUMONIA [None]
  - PYREXIA [None]
  - RENAL DISORDER [None]
  - SPLENOMEGALY [None]
  - WHITE BLOOD CELL COUNT DECREASED [None]
